FAERS Safety Report 24082216 (Version 1)
Quarter: 2024Q3

REPORT INFORMATION
  Report Type: Spontaneous
  Country: RU (occurrence: RU)
  Receive Date: 20240712
  Receipt Date: 20240712
  Transmission Date: 20241016
  Serious: Yes (Other)
  Sender: SERVIER
  Company Number: RU-SERVIER-S24008182

PATIENT

DRUGS (2)
  1. ONCASPAR [Suspect]
     Active Substance: PEGASPARGASE
     Indication: Acute lymphocytic leukaemia
     Dosage: UNK
     Route: 065
     Dates: start: 2024, end: 2024
  2. ONCASPAR [Suspect]
     Active Substance: PEGASPARGASE
     Dosage: 500 IU
     Route: 065
     Dates: start: 2024, end: 20240410

REACTIONS (4)
  - Hypotension [Recovered/Resolved]
  - Urticaria [Recovered/Resolved]
  - Hypoxia [Recovered/Resolved]
  - Drug level decreased [Not Recovered/Not Resolved]

NARRATIVE: CASE EVENT DATE: 20240410
